FAERS Safety Report 7641157-9 (Version None)
Quarter: 2011Q3

REPORT INFORMATION
  Report Type: 
  Country: None (occurrence: None)
  Receive Date: 20110728
  Receipt Date: 20110714
  Transmission Date: 20111222
  Serious: Yes (Hospitalization, Other)
  Sender: FDA-Public Use
  Company Number: PHEH2009US03892

PATIENT
  Sex: Male
  Weight: 86.621 kg

DRUGS (20)
  1. VITAMIN D [Concomitant]
  2. AVELOX [Concomitant]
  3. ALEVE [Concomitant]
  4. DIFLUCAN [Concomitant]
  5. IBUPROFEN (ADVIL) [Concomitant]
  6. EPOGEN [Concomitant]
  7. LYSINE [Concomitant]
  8. DOXYCYCLINE [Concomitant]
  9. AREDIA [Suspect]
  10. TRENTAL ^ALBERT-ROUSSEL^ [Concomitant]
  11. VELCADE [Concomitant]
  12. MOTRIN [Concomitant]
  13. HEPARIN [Concomitant]
  14. CEFOTAXIME [Concomitant]
  15. LACTOBACILLUS [Concomitant]
  16. ASCORBIC ACID [Concomitant]
  17. VITAMIN B COMPLEX CAP [Concomitant]
  18. ALBUTEROL SULFATE AUTOHALER [Concomitant]
  19. VICODIN [Concomitant]
  20. CELEBREX [Concomitant]

REACTIONS (93)
  - ANXIETY [None]
  - EXPOSED BONE IN JAW [None]
  - GINGIVAL SWELLING [None]
  - UPPER RESPIRATORY TRACT INFECTION [None]
  - BLOOD CREATININE INCREASED [None]
  - HYPERGAMMAGLOBULINAEMIA [None]
  - FATIGUE [None]
  - SCOLIOSIS [None]
  - HEADACHE [None]
  - MIGRAINE [None]
  - COLONIC POLYP [None]
  - LEFT VENTRICULAR HYPERTROPHY [None]
  - ANHEDONIA [None]
  - HYPOAESTHESIA [None]
  - NEUTROPENIA [None]
  - HAEMORRHOIDS [None]
  - INTERVERTEBRAL DISC DEGENERATION [None]
  - SYNCOPE [None]
  - MENISCUS LESION [None]
  - BACTERIAL INFECTION [None]
  - ERYTHEMA [None]
  - SINUSITIS [None]
  - CHILLS [None]
  - HYPOKALAEMIA [None]
  - PNEUMONIA HAEMOPHILUS [None]
  - EMPYEMA [None]
  - PAIN [None]
  - MOUTH ULCERATION [None]
  - ANAEMIA [None]
  - FAECES DISCOLOURED [None]
  - PETECHIAE [None]
  - SEROSITIS [None]
  - BODY TINEA [None]
  - PNEUMONIA KLEBSIELLA [None]
  - VOCAL CORD DISORDER [None]
  - LIVER FUNCTION TEST ABNORMAL [None]
  - MUCOSAL INFLAMMATION [None]
  - DISABILITY [None]
  - MUSCULAR WEAKNESS [None]
  - ENTEROVESICAL FISTULA [None]
  - GASTRITIS EROSIVE [None]
  - RECTAL POLYP [None]
  - NASAL SEPTUM DEVIATION [None]
  - SPINAL OSTEOARTHRITIS [None]
  - JOINT CREPITATION [None]
  - JOINT DISLOCATION [None]
  - CYSTITIS INTERSTITIAL [None]
  - INGUINAL HERNIA [None]
  - THROMBOCYTOPENIA [None]
  - AORTIC VALVE SCLEROSIS [None]
  - CHEST PAIN [None]
  - OSTEONECROSIS OF JAW [None]
  - GENERAL PHYSICAL HEALTH DETERIORATION [None]
  - ORAL PAIN [None]
  - NEUROPATHY PERIPHERAL [None]
  - HIATUS HERNIA [None]
  - PAIN IN EXTREMITY [None]
  - ARTHRALGIA [None]
  - OSTEOMYELITIS [None]
  - DIVERTICULITIS [None]
  - CYSTITIS [None]
  - FAECALURIA [None]
  - PYREXIA [None]
  - COUGH [None]
  - PYOGENIC GRANULOMA [None]
  - MITRAL VALVE PROLAPSE [None]
  - ATRIAL SEPTAL DEFECT [None]
  - RADICULOPATHY [None]
  - OSTEOARTHRITIS [None]
  - ATELECTASIS [None]
  - MYALGIA [None]
  - DYSPHONIA [None]
  - AORTIC DISORDER [None]
  - MEASLES [None]
  - MUMPS [None]
  - TOOTH ABSCESS [None]
  - PAIN IN JAW [None]
  - PERIODONTAL DISEASE [None]
  - PARAESTHESIA [None]
  - RENAL FAILURE CHRONIC [None]
  - DYSPNOEA [None]
  - PLEURAL EFFUSION [None]
  - HAEMATURIA [None]
  - MITRAL VALVE INCOMPETENCE [None]
  - TRICUSPID VALVE INCOMPETENCE [None]
  - CORONARY ARTERY DISEASE [None]
  - PULMONARY VALVE STENOSIS [None]
  - TENDONITIS [None]
  - ARTHROPOD BITE [None]
  - STREPTOCOCCAL INFECTION [None]
  - DERMATITIS CONTACT [None]
  - NOCTURIA [None]
  - HYPONATRAEMIA [None]
